FAERS Safety Report 22400466 (Version 1)
Quarter: 2023Q2

REPORT INFORMATION
  Report Type: Spontaneous
  Country: US (occurrence: None)
  Receive Date: 20230601
  Receipt Date: 20230601
  Transmission Date: 20230722
  Serious: No
  Sender: FDA-Public Use
  Company Number: None

PATIENT
  Age: 59 Year
  Sex: Male
  Weight: 108 kg

DRUGS (1)
  1. NUCALA [Suspect]
     Active Substance: MEPOLIZUMAB
     Dates: start: 20220512

REACTIONS (3)
  - Arthralgia [None]
  - Arthralgia [None]
  - Back pain [None]

NARRATIVE: CASE EVENT DATE: 20230514
